FAERS Safety Report 15932866 (Version 4)
Quarter: 2019Q4

REPORT INFORMATION
  Report Type: Report from Study
  Country: None (occurrence: DE)
  Receive Date: 20190207
  Receipt Date: 20191202
  Transmission Date: 20200122
  Serious: Yes (Hospitalization, Other)
  Sender: FDA-Public Use
  Company Number: DE-ABBVIE-19K-062-2624194-00

PATIENT
  Age: 61 Year
  Sex: Male
  Weight: 85 kg

DRUGS (8)
  1. CANDESARTAN. [Concomitant]
     Active Substance: CANDESARTAN
     Indication: HYPERTENSION
  2. METOPROLOL. [Concomitant]
     Active Substance: METOPROLOL
     Indication: PRODUCT USED FOR UNKNOWN INDICATION
  3. HUMIRA [Suspect]
     Active Substance: ADALIMUMAB
     Indication: PSORIASIS
     Route: 058
  4. HUMIRA [Suspect]
     Active Substance: ADALIMUMAB
     Indication: PSORIASIS
     Route: 058
     Dates: start: 20121113
  5. ACETYLSALICYLIC ACID [Concomitant]
     Active Substance: ASPIRIN
     Indication: PRODUCT USED FOR UNKNOWN INDICATION
  6. SIMVASTATIN. [Concomitant]
     Active Substance: SIMVASTATIN
     Indication: HYPERLIPIDAEMIA
  7. CLOPIDOGREL [Concomitant]
     Active Substance: CLOPIDOGREL BISULFATE
     Indication: HYPERTENSION
  8. IVABRADINE [Concomitant]
     Active Substance: IVABRADINE
     Indication: HYPERTENSION

REACTIONS (19)
  - Myocardial infarction [Recovered/Resolved]
  - Asthenia [Unknown]
  - Intermittent claudication [Unknown]
  - Pain in jaw [Unknown]
  - Hypertension [Not Recovered/Not Resolved]
  - Chest discomfort [Unknown]
  - Dyspnoea [Not Recovered/Not Resolved]
  - Peripheral arterial occlusive disease [Not Recovered/Not Resolved]
  - General physical health deterioration [Recovering/Resolving]
  - Alanine aminotransferase increased [Unknown]
  - Blood glucose increased [Unknown]
  - Lymphocyte count increased [Unknown]
  - Pain in extremity [Unknown]
  - Hypertensive heart disease [Unknown]
  - Coronary artery disease [Unknown]
  - Coronary artery stenosis [Not Recovered/Not Resolved]
  - Left ventricular hypertrophy [Not Recovered/Not Resolved]
  - Left ventricular dysfunction [Unknown]
  - Breast pain [Unknown]

NARRATIVE: CASE EVENT DATE: 201809
